FAERS Safety Report 18244050 (Version 3)
Quarter: 2020Q4

REPORT INFORMATION
  Report Type: Spontaneous
  Country: US (occurrence: US)
  Receive Date: 20200909
  Receipt Date: 20201013
  Transmission Date: 20210113
  Serious: Yes (Death, Life-Threatening, Hospitalization, Other)
  Sender: FDA-Public Use
  Company Number: US-AUROBINDO-AUR-APL-2020-046970

PATIENT
  Age: 28 Year
  Sex: Male

DRUGS (2)
  1. OXYCODONE [Suspect]
     Active Substance: OXYCODONE
     Indication: ANALGESIC THERAPY
     Dosage: 5-10 MILLIGRAMS, EVERY 4 HOURS
     Route: 065
  2. OXYCODONE [Suspect]
     Active Substance: OXYCODONE
     Indication: PANCREATITIS CHRONIC
     Dosage: 10 MILLIGRAM, TOTAL
     Route: 054

REACTIONS (6)
  - Incorrect product dosage form administered [Unknown]
  - Unresponsive to stimuli [Recovered/Resolved]
  - Depressed level of consciousness [Recovered/Resolved]
  - Intentional product use issue [Unknown]
  - Intentional product misuse [Fatal]
  - Intentional overdose [Fatal]
